FAERS Safety Report 17810864 (Version 2)
Quarter: 2020Q2

REPORT INFORMATION
  Report Type: Spontaneous
  Country: US (occurrence: US)
  Receive Date: 20200521
  Receipt Date: 20200523
  Transmission Date: 20200714
  Serious: Yes (Life-Threatening, Other)
  Sender: FDA-Public Use
  Company Number: US-HIKMA PHARMACEUTICALS USA INC.-US-H14001-20-02362

PATIENT
  Age: 75 Year
  Sex: Male

DRUGS (3)
  1. CYCLOPHOSPHAMIDE. [Suspect]
     Active Substance: CYCLOPHOSPHAMIDE
     Indication: B-CELL DEPLETION THERAPY
     Route: 065
  2. BORTEZOMIB. [Suspect]
     Active Substance: BORTEZOMIB
     Indication: B-CELL DEPLETION THERAPY
     Route: 065
  3. DEXAMETHASONE. [Suspect]
     Active Substance: DEXAMETHASONE
     Indication: B-CELL DEPLETION THERAPY
     Route: 065

REACTIONS (4)
  - Monoclonal gammopathy [Unknown]
  - Transplant failure [Unknown]
  - Herpes zoster cutaneous disseminated [Unknown]
  - Drug ineffective [Not Recovered/Not Resolved]
